FAERS Safety Report 12205180 (Version 2)
Quarter: 2016Q2

REPORT INFORMATION
  Report Type: Report from Study
  Country: BR (occurrence: BR)
  Receive Date: 20160323
  Receipt Date: 20160428
  Transmission Date: 20160815
  Serious: Yes (Hospitalization, Other)
  Sender: FDA-Public Use
  Company Number: BR-BAYER-2016-051265

PATIENT
  Age: 55 Year
  Sex: Female

DRUGS (3)
  1. BETAFERON [Suspect]
     Active Substance: INTERFERON BETA-1B
     Indication: PROGRESSIVE MULTIPLE SCLEROSIS
     Dosage: 1 ML, QOD
     Route: 058
     Dates: start: 201104
  2. TRAMADOL. [Concomitant]
     Active Substance: TRAMADOL
     Indication: PAIN
  3. NOVALGIN [Concomitant]
     Active Substance: METAMIZOLE SODIUM
     Indication: PAIN

REACTIONS (8)
  - Stomatitis [Not Recovered/Not Resolved]
  - Surgery [Recovered/Resolved]
  - Muscle atrophy [None]
  - Fall [Recovered/Resolved]
  - Femur fracture [Recovered/Resolved]
  - Pain [Not Recovered/Not Resolved]
  - Injection site pain [None]
  - Coma [None]

NARRATIVE: CASE EVENT DATE: 201404
